FAERS Safety Report 6301936-7 (Version None)
Quarter: 2009Q3

REPORT INFORMATION
  Report Type: 
  Country: None (occurrence: None)
  Receive Date: 20090807
  Receipt Date: 20090801
  Transmission Date: 20100115
  Serious: Yes (Other)
  Sender: FDA-Public Use
  Company Number: IT-AMGEN-UK346995

PATIENT
  Sex: Male
  Weight: 95.5 kg

DRUGS (4)
  1. PANITUMUMAB [Suspect]
     Indication: COLORECTAL CANCER
     Route: 042
     Dates: start: 20081013, end: 20081209
  2. FOLINIC ACID [Concomitant]
     Route: 042
     Dates: start: 20081112, end: 20081113
  3. 5-FU [Concomitant]
     Route: 042
     Dates: start: 20081112, end: 20081113
  4. IRINOTECAN HCL [Concomitant]
     Route: 042
     Dates: start: 20081112, end: 20081113

REACTIONS (3)
  - FOLLICULITIS [None]
  - MALIGNANT NEOPLASM PROGRESSION [None]
  - XEROSIS [None]
